FAERS Safety Report 9537067 (Version 1)
Quarter: 2013Q3

REPORT INFORMATION
  Report Type: Spontaneous
  Country: US (occurrence: US)
  Receive Date: 20130919
  Receipt Date: 20130919
  Transmission Date: 20140515
  Serious: No
  Sender: FDA-Public Use
  Company Number: US-PFIZER INC-2013269495

PATIENT
  Age: 63 Year
  Sex: Female
  Weight: 53.52 kg

DRUGS (6)
  1. LYRICA [Suspect]
     Indication: FIBROMYALGIA
     Dosage: 50MG CAPSULE IN MORNING AND 125MG AT NIGHT (BY TAKING 50MG AND 75MG TOGETHER)
     Route: 048
  2. LYRICA [Suspect]
     Dosage: 50MG CAPSULE IN MORNING AND 125MG AT NIGHT (BY TAKING 50MG AND 75MG TOGETHER)
     Route: 048
  3. LISINOPRIL [Concomitant]
     Indication: HYPERTENSION
     Dosage: UNK
  4. DILTIAZEM [Concomitant]
     Indication: HYPERTENSION
     Dosage: UNK
  5. XANAX [Concomitant]
     Indication: DEPRESSION
     Dosage: UNK
  6. SEROQUEL [Concomitant]
     Dosage: 300 MG, UNK

REACTIONS (11)
  - Intentional drug misuse [Unknown]
  - Pain [Not Recovered/Not Resolved]
  - Abnormal behaviour [Not Recovered/Not Resolved]
  - Asthenia [Not Recovered/Not Resolved]
  - Stress [Not Recovered/Not Resolved]
  - Blood pressure abnormal [Not Recovered/Not Resolved]
  - Nausea [Not Recovered/Not Resolved]
  - Feeling abnormal [Not Recovered/Not Resolved]
  - Gait disturbance [Not Recovered/Not Resolved]
  - Drug intolerance [Not Recovered/Not Resolved]
  - Disturbance in attention [Not Recovered/Not Resolved]
